FAERS Safety Report 5598234-6 (Version None)
Quarter: 2008Q1

REPORT INFORMATION
  Report Type: 
  Country: None (occurrence: None)
  Receive Date: 20080117
  Receipt Date: 20080117
  Transmission Date: 20080703
  Serious: Yes (Life-Threatening)
  Sender: FDA-Public Use
  Company Number: None

PATIENT
  Age: 19 Year
  Sex: Female
  Weight: 58.0604 kg

DRUGS (1)
  1. YASMIN [Suspect]
     Indication: MENSTRUATION IRREGULAR
     Dosage: 1 TABLET DAILY PO
     Route: 048
     Dates: start: 20060101, end: 20080102

REACTIONS (3)
  - OEDEMA PERIPHERAL [None]
  - SKIN DISCOLOURATION [None]
  - SUBCLAVIAN VEIN THROMBOSIS [None]
